FAERS Safety Report 5739458-4 (Version None)
Quarter: 2008Q2

REPORT INFORMATION
  Report Type: 
  Country: None (occurrence: None)
  Receive Date: 20080513
  Receipt Date: 20080508
  Transmission Date: 20081010
  Serious: Yes (Hospitalization)
  Sender: FDA-Public Use
  Company Number: 2008SP001691

PATIENT
  Age: 67 Year
  Sex: Female
  Weight: 43 kg

DRUGS (2)
  1. PEG-INTRON [Suspect]
     Indication: HEPATITIS C
     Dosage: 50 MCG; QW; SC
     Route: 058
     Dates: start: 20060818, end: 20060830
  2. REBETOL [Suspect]
     Indication: HEPATITIS C
     Dosage: 400 MG; QD; PO
     Route: 048
     Dates: start: 20060818, end: 20060830

REACTIONS (3)
  - DISSEMINATED INTRAVASCULAR COAGULATION [None]
  - PSOAS ABSCESS [None]
  - RENAL FAILURE ACUTE [None]
